FAERS Safety Report 9230890 (Version 3)
Quarter: 2014Q1

REPORT INFORMATION
  Report Type: Report from Study
  Country: JP (occurrence: JP)
  Receive Date: 20130415
  Receipt Date: 20140203
  Transmission Date: 20141002
  Serious: Yes (Death, Other)
  Sender: FDA-Public Use
  Company Number: PHHY2011JP111262

PATIENT
  Age: 25 Year
  Sex: Male

DRUGS (24)
  1. LEPONEX / CLOZARIL [Suspect]
     Indication: SCHIZOPHRENIA, PARANOID TYPE
     Dosage: 12.5 MG, DAILY
     Route: 048
     Dates: start: 20110518, end: 20110518
  2. LEPONEX / CLOZARIL [Suspect]
     Dosage: 25 MG, DAILY
     Route: 048
     Dates: start: 20110519, end: 20110521
  3. LEPONEX / CLOZARIL [Suspect]
     Dosage: 50 MG, DAILY
     Route: 048
     Dates: start: 20110522, end: 20110524
  4. LEPONEX / CLOZARIL [Suspect]
     Dosage: 75 MG, DAILY
     Route: 048
     Dates: start: 20110525, end: 20110526
  5. LEPONEX / CLOZARIL [Suspect]
     Dosage: 100 MG, DAILY
     Route: 048
     Dates: start: 20110527, end: 20110528
  6. LEPONEX / CLOZARIL [Suspect]
     Dosage: 125 MG, DAILY
     Route: 048
     Dates: start: 20110529, end: 20110531
  7. LEPONEX / CLOZARIL [Suspect]
     Dosage: 150 MG, DAILY
     Route: 048
     Dates: start: 20110601, end: 20110603
  8. LEPONEX / CLOZARIL [Suspect]
     Dosage: 175 MG, DAILY
     Route: 048
     Dates: start: 20110604, end: 20110606
  9. LEPONEX / CLOZARIL [Suspect]
     Dosage: 200 MG, DAILY
     Route: 048
     Dates: start: 20110607, end: 20110611
  10. LEPONEX / CLOZARIL [Suspect]
     Dosage: 225 MG, DAILY
     Route: 048
     Dates: start: 20110612, end: 20110621
  11. LEPONEX / CLOZARIL [Suspect]
     Dosage: 250 MG, DAILY
     Route: 048
     Dates: start: 20110622, end: 20110625
  12. LEPONEX / CLOZARIL [Suspect]
     Dosage: 275 MG, DAILY
     Route: 048
     Dates: start: 20110626, end: 20110629
  13. LEPONEX / CLOZARIL [Suspect]
     Dosage: 300 MG, DAILY
     Dates: start: 20110630, end: 20110712
  14. LEPONEX / CLOZARIL [Suspect]
     Dosage: 325 MG, DAILY
     Route: 048
     Dates: start: 20110713, end: 20110802
  15. LEPONEX / CLOZARIL [Suspect]
     Dosage: 350 MG, DAILY
     Route: 048
     Dates: start: 20110803, end: 20110809
  16. LEPONEX / CLOZARIL [Suspect]
     Dosage: 375 MG, DAILY
     Route: 048
     Dates: start: 20110810, end: 20110816
  17. LEPONEX / CLOZARIL [Suspect]
     Dosage: 400 MG, DAILY
     Route: 048
     Dates: start: 20110817, end: 20110818
  18. LEPONEX / CLOZARIL [Suspect]
     Dosage: 425 MG, DAILY
     Route: 048
     Dates: start: 20110819, end: 20111114
  19. LEPONEX / CLOZARIL [Suspect]
     Dosage: 450 MG, DAILY
     Route: 048
     Dates: start: 20111115
  20. LIMAS [Concomitant]
     Indication: SCHIZOPHRENIA, PARANOID TYPE
     Dosage: 600 MG, UNK
     Dates: start: 20110517
  21. LODOPIN [Concomitant]
     Dosage: 200 MG, UNK
     Route: 048
     Dates: start: 20110228, end: 20110527
  22. OLANZAPINE [Concomitant]
     Dosage: 40 MG, UNK
     Route: 048
     Dates: start: 20110322, end: 20110607
  23. AKINETON [Concomitant]
     Indication: PARKINSON^S DISEASE
     Dosage: 3 MG
     Route: 048
  24. AKINETON [Concomitant]
     Dosage: 1 MG, UNK

REACTIONS (4)
  - Fall [Fatal]
  - Hypothermia [Fatal]
  - Concomitant disease aggravated [Unknown]
  - Mental retardation [Not Recovered/Not Resolved]
